FAERS Safety Report 9225447 (Version 1)
Quarter: 2013Q2

REPORT INFORMATION
  Report Type: Spontaneous
  Country: FR (occurrence: FR)
  Receive Date: 20130411
  Receipt Date: 20130411
  Transmission Date: 20140414
  Serious: Yes (Hospitalization, Other)
  Sender: FDA-Public Use
  Company Number: FR-BAXTER-2013BAX012469

PATIENT
  Age: 5 Year
  Sex: Male

DRUGS (5)
  1. ENDOXAN 1000 MG, LYOPHILISAT POUR SOLUTION INJECTABLE [Suspect]
     Indication: T-CELL TYPE ACUTE LEUKAEMIA
     Route: 042
     Dates: start: 20130207, end: 20130207
  2. LANVIS [Suspect]
     Indication: T-CELL TYPE ACUTE LEUKAEMIA
     Route: 048
     Dates: start: 20130207, end: 20130223
  3. ARACYTINE [Suspect]
     Indication: T-CELL TYPE ACUTE LEUKAEMIA
     Route: 058
     Dates: start: 20130207, end: 20130221
  4. METHOTREXATE [Suspect]
     Indication: T-CELL TYPE ACUTE LEUKAEMIA
     Route: 037
     Dates: start: 20130207, end: 20130207
  5. ARACYTINE [Suspect]
     Indication: T-CELL TYPE ACUTE LEUKAEMIA
     Route: 037
     Dates: start: 20130207, end: 20130207

REACTIONS (3)
  - Venoocclusive disease [Recovering/Resolving]
  - Thrombocytopenia [Recovering/Resolving]
  - Neutropenia [Unknown]
